FAERS Safety Report 7769709-6 (Version None)
Quarter: 2011Q3

REPORT INFORMATION
  Report Type: 
  Country: None (occurrence: None)
  Receive Date: 20110922
  Receipt Date: 20101228
  Transmission Date: 20111222
  Serious: No
  Sender: FDA-Public Use
  Company Number: US-ASTRAZENECA-2010SE61053

PATIENT
  Age: 42 Year
  Sex: Male
  Weight: 96.2 kg

DRUGS (5)
  1. SEROQUEL [Suspect]
     Indication: BIPOLAR DISORDER
     Route: 048
     Dates: start: 20101101, end: 20101101
  2. TRIAZOLAM [Concomitant]
     Indication: INSOMNIA
  3. PAXIL [Concomitant]
     Indication: BIPOLAR DISORDER
  4. CARBAMAZEPINE [Concomitant]
  5. SYNTHROID [Concomitant]
     Indication: THYROID DISORDER

REACTIONS (2)
  - DRUG DOSE OMISSION [None]
  - TREMOR [None]
